FAERS Safety Report 5289189-2 (Version None)
Quarter: 2007Q1

REPORT INFORMATION
  Report Type: 
  Country: None (occurrence: None)
  Receive Date: 20070119
  Receipt Date: 20060313
  Transmission Date: 20070707
  Serious: Yes (Other)
  Sender: FDA-Public Use
  Company Number: BDI-007996

PATIENT
  Age: 44 Year
  Sex: Female
  Weight: 117 kg

DRUGS (2)
  1. PROHANCE [Suspect]
     Indication: NUCLEAR MAGNETIC RESONANCE IMAGING BRAIN
     Dosage: 20 ML ONCE IV
     Route: 042
     Dates: start: 20060303, end: 20060303
  2. PROHANCE [Suspect]
     Indication: OPTIC NERVE NEOPLASM
     Dosage: 20 ML ONCE IV
     Route: 042
     Dates: start: 20060303, end: 20060303

REACTIONS (7)
  - CONVULSION [None]
  - DROOLING [None]
  - EYE ROLLING [None]
  - HYPERSENSITIVITY [None]
  - MUSCULOSKELETAL STIFFNESS [None]
  - TREMOR [None]
  - UNRESPONSIVE TO STIMULI [None]
